FAERS Safety Report 5618843-5 (Version None)
Quarter: 2008Q1

REPORT INFORMATION
  Report Type: 
  Country: None (occurrence: None)
  Receive Date: 20080205
  Receipt Date: 20080128
  Transmission Date: 20080703
  Serious: Yes (Hospitalization)
  Sender: FDA-Public Use
  Company Number: 163-21880-07110021

PATIENT
  Age: 78 Year
  Sex: Female
  Weight: 49.4 kg

DRUGS (9)
  1. REVLIMID [Suspect]
     Indication: MULTIPLE MYELOMA
     Dosage: 25 MG, 1 IN1 D, ORAL
     Route: 048
     Dates: start: 20071029, end: 20071120
  2. SYNTHROID [Concomitant]
  3. LEVAQUIN [Concomitant]
  4. LASIX [Concomitant]
  5. K-DUR 10 [Concomitant]
  6. ATENOLOL [Concomitant]
  7. NIFEDIPINE ER (NIFEDIPINE) [Concomitant]
  8. DIOVAN [Concomitant]
  9. ACYCLOVIR [Concomitant]

REACTIONS (18)
  - BLOOD PRESSURE DIASTOLIC DECREASED [None]
  - BLOOD UREA INCREASED [None]
  - DIZZINESS [None]
  - DYSPEPSIA [None]
  - FATIGUE [None]
  - HEADACHE [None]
  - HEART RATE DECREASED [None]
  - HYPERTENSION [None]
  - LIGHT CHAIN ANALYSIS INCREASED [None]
  - LYMPHOCYTE PERCENTAGE INCREASED [None]
  - MALAISE [None]
  - MEMORY IMPAIRMENT [None]
  - MENTAL STATUS CHANGES [None]
  - PRESYNCOPE [None]
  - STARING [None]
  - THROMBOTIC THROMBOCYTOPENIC PURPURA [None]
  - VITAMIN B12 DEFICIENCY [None]
  - WHITE BLOOD CELL COUNT DECREASED [None]
